FAERS Safety Report 13737945 (Version 1)
Quarter: 2017Q3

REPORT INFORMATION
  Report Type: Spontaneous
  Country: BE (occurrence: BE)
  Receive Date: 20170710
  Receipt Date: 20170710
  Transmission Date: 20171127
  Serious: Yes (Other)
  Sender: FDA-Public Use
  Company Number: PHHY2009BE46515

PATIENT
  Age: 70 Year
  Sex: Male

DRUGS (1)
  1. HYDERGINE [Suspect]
     Active Substance: ERGOLOID MESYLATES
     Dosage: UNK

REACTIONS (2)
  - Pleural disorder [Unknown]
  - Dyspnoea [Unknown]
